FAERS Safety Report 9457795 (Version 17)
Quarter: 2014Q4

REPORT INFORMATION
  Report Type: Report from Study
  Country: CA (occurrence: CA)
  Receive Date: 20130814
  Receipt Date: 20141219
  Transmission Date: 20150529
  Serious: Yes (Hospitalization)
  Sender: FDA-Public Use
  Company Number: PHHY2013CA086029

PATIENT
  Age: 72 Year
  Sex: Female

DRUGS (3)
  1. SANDOSTATIN [Suspect]
     Active Substance: OCTREOTIDE ACETATE
     Dosage: UNK
     Route: 065
     Dates: start: 20130729
  2. SANDOSTATIN LAR DEPOT [Suspect]
     Active Substance: OCTREOTIDE ACETATE
     Indication: ANGIODYSPLASIA
     Dosage: 20 MG, EVERY 4 WEEKS
     Route: 030
     Dates: start: 20130904, end: 20141114
  3. SANDOSTATIN [Suspect]
     Active Substance: OCTREOTIDE ACETATE
     Indication: PRODUCT USED FOR UNKNOWN INDICATION
     Dosage: UNK
     Route: 058

REACTIONS (13)
  - Oxygen saturation decreased [Unknown]
  - Memory impairment [Unknown]
  - Mental disorder [Unknown]
  - Anaemia [Unknown]
  - Pneumonia [Unknown]
  - Tachycardia [Unknown]
  - Lung disorder [Unknown]
  - Dysstasia [Unknown]
  - Asthenia [Unknown]
  - Pyrexia [Unknown]
  - Product use issue [Unknown]
  - Dyspnoea [Unknown]
  - Cognitive disorder [Unknown]

NARRATIVE: CASE EVENT DATE: 20140121
